FAERS Safety Report 4337559-9 (Version None)
Quarter: 2004Q2

REPORT INFORMATION
  Report Type: 
  Country: None (occurrence: None)
  Receive Date: 20040412
  Receipt Date: 20040412
  Transmission Date: 20050107
  Serious: Yes (Hospitalization)
  Sender: FDA-Public Use
  Company Number: None

PATIENT
  Sex: Male
  Weight: 83.0083 kg

DRUGS (10)
  1. WARFARIN SODIUM [Suspect]
     Indication: PROTEIN C DECREASED
     Dosage: 3MG DAILY ORAL
     Route: 048
     Dates: start: 20030801, end: 20040410
  2. WARFARIN SODIUM [Suspect]
     Indication: PROTEIN S DECREASED
     Dosage: 3MG DAILY ORAL
     Route: 048
     Dates: start: 20030801, end: 20040410
  3. TRAMADOL HCL [Concomitant]
  4. PROPRANOLOL [Concomitant]
  5. OLANZEPINE [Concomitant]
  6. GALANTAMINE [Concomitant]
  7. CITALOPRAM [Concomitant]
  8. CYANOCOBALAMIN INJ [Concomitant]
  9. CLONAZEPAM [Concomitant]
  10. SIMVASTATIN [Concomitant]

REACTIONS (3)
  - HAEMATURIA [None]
  - INTERNATIONAL NORMALISED RATIO INCREASED [None]
  - MEDICATION ERROR [None]
